FAERS Safety Report 8395699-1 (Version None)
Quarter: 2012Q2

REPORT INFORMATION
  Report Type: 
  Country: None (occurrence: None)
  Receive Date: 20120530
  Receipt Date: 20120315
  Transmission Date: 20120825
  Serious: No
  Sender: FDA-Public Use
  Company Number: US-GLAXOSMITHKLINE-A0969903A

PATIENT
  Age: 28 Year
  Sex: Male

DRUGS (3)
  1. VENTOLIN [Suspect]
     Indication: WHEEZING
     Dosage: 2PUFF AS REQUIRED
     Route: 055
     Dates: start: 19990301
  2. ANTIBIOTIC [Concomitant]
  3. VALACYCLOVIR HYDROCHLORIDE [Concomitant]

REACTIONS (3)
  - PRODUCT QUALITY ISSUE [None]
  - DRUG INEFFECTIVE [None]
  - AGEUSIA [None]
